FAERS Safety Report 6058182-4 (Version None)
Quarter: 2009Q1

REPORT INFORMATION
  Report Type: 
  Country: None (occurrence: None)
  Receive Date: 20090128
  Receipt Date: 20090128
  Transmission Date: 20090719
  Serious: No
  Sender: FDA-Public Use
  Company Number: None

PATIENT

DRUGS (5)
  1. NEODM SUSPENSION 30/25/10 LASER [Suspect]
     Indication: COUGH
     Dosage: Q12H PO
     Route: 048
  2. NEODM SUSPENSION 30/25/10 LASER [Suspect]
     Indication: NASOPHARYNGITIS
     Dosage: Q12H PO
     Route: 048
  3. NEODM SYRUP 30/50/3 LASER [Suspect]
     Indication: COUGH
     Dosage: Q6H PO
     Route: 048
  4. NEODM SYRUP 30/50/3 LASER [Suspect]
     Indication: NASOPHARYNGITIS
     Dosage: Q6H PO
     Route: 048
  5. DMTANN/PE TANN/BROMTANN [Concomitant]

REACTIONS (1)
  - MEDICATION ERROR [None]
